FAERS Safety Report 9703289 (Version 1)
Quarter: 2013Q4

REPORT INFORMATION
  Report Type: Spontaneous
  Country: FI (occurrence: FI)
  Receive Date: 20131122
  Receipt Date: 20131122
  Transmission Date: 20140711
  Serious: Yes (Other)
  Sender: FDA-Public Use
  Company Number: FI-AMGEN-FINSP2013081961

PATIENT
  Age: 18 Year
  Sex: Male

DRUGS (6)
  1. NEULASTA [Suspect]
     Indication: TESTIS CANCER
     Dosage: UNK
     Route: 065
  2. PACLITAXEL [Concomitant]
     Indication: TESTIS CANCER
     Dosage: UNK
  3. IFOSFAMIDE [Concomitant]
     Indication: TESTIS CANCER
     Dosage: UNK
  4. CARBOPLATIN [Concomitant]
     Indication: TESTIS CANCER
     Dosage: UNK
  5. TAVANIC [Concomitant]
     Dosage: UNK
  6. CEFTRIAXONE [Concomitant]
     Dosage: UNK

REACTIONS (4)
  - Hepatic steatosis [Unknown]
  - Alanine aminotransferase abnormal [Unknown]
  - Inappropriate schedule of drug administration [Unknown]
  - Nausea [Unknown]
